FAERS Safety Report 11176632 (Version 1)
Quarter: 2015Q2

REPORT INFORMATION
  Report Type: Spontaneous
  Country: US (occurrence: US)
  Receive Date: 20150610
  Receipt Date: 20150610
  Transmission Date: 20150821
  Serious: Yes (Other)
  Sender: FDA-Public Use
  Company Number: PHEH2015US010708

PATIENT
  Age: 24 Year
  Sex: Female
  Weight: 99.2 kg

DRUGS (2)
  1. GILENYA [Suspect]
     Active Substance: FINGOLIMOD HYDROCHLORIDE
     Dosage: 0.5 MG, QD
     Route: 048
     Dates: start: 20150115, end: 201502
  2. GILENYA [Suspect]
     Active Substance: FINGOLIMOD HYDROCHLORIDE
     Indication: MULTIPLE SCLEROSIS
     Dosage: 0.5 MG, QD
     Route: 048
     Dates: start: 201410, end: 201411

REACTIONS (36)
  - Gait disturbance [Unknown]
  - Speech disorder [Unknown]
  - Thrombophlebitis superficial [Unknown]
  - Body mass index increased [Unknown]
  - Depressed mood [Unknown]
  - Aphasia [Unknown]
  - Oedema peripheral [Unknown]
  - Hyperphagia [Unknown]
  - Protrusion tongue [Unknown]
  - Multiple sclerosis relapse [Unknown]
  - Vision blurred [Recovering/Resolving]
  - Balance disorder [Unknown]
  - Dizziness [Unknown]
  - Body temperature increased [Unknown]
  - Tremor [Unknown]
  - Paraesthesia [Unknown]
  - Pain [Unknown]
  - Fatigue [Unknown]
  - Nausea [Unknown]
  - Pain in extremity [Unknown]
  - Hypoaesthesia [Unknown]
  - Heart rate increased [Unknown]
  - Visual impairment [Unknown]
  - Fall [Unknown]
  - Thrombosis [Unknown]
  - Memory impairment [Recovering/Resolving]
  - Varicose vein [Unknown]
  - Temperature intolerance [Unknown]
  - Muscle spasticity [Unknown]
  - Myalgia [Unknown]
  - Abdominal pain [Unknown]
  - Musculoskeletal stiffness [Unknown]
  - Coordination abnormal [Unknown]
  - Gastrointestinal disorder [Unknown]
  - Blood pressure systolic increased [Unknown]
  - Burning sensation [Unknown]

NARRATIVE: CASE EVENT DATE: 20150415
